FAERS Safety Report 7810053-6 (Version None)
Quarter: 2011Q4

REPORT INFORMATION
  Report Type: 
  Country: None (occurrence: None)
  Receive Date: 20111012
  Receipt Date: 20110901
  Transmission Date: 20120403
  Serious: No
  Sender: FDA-Public Use
  Company Number: US-GLAXOSMITHKLINE-A0943186A

PATIENT
  Age: 73 Year
  Sex: Male

DRUGS (3)
  1. MELOXICAM [Concomitant]
  2. JALYN [Suspect]
     Indication: BENIGN PROSTATIC HYPERPLASIA
     Dosage: 1CAP PER DAY
     Route: 048
     Dates: start: 20110824, end: 20110829
  3. LIPITOR [Concomitant]

REACTIONS (2)
  - EAR INFECTION [None]
  - DIZZINESS [None]
